FAERS Safety Report 12903656 (Version 1)
Quarter: 2016Q4

REPORT INFORMATION
  Report Type: Report from Study
  Country: BR (occurrence: BR)
  Receive Date: 20161102
  Receipt Date: 20161102
  Transmission Date: 20170207
  Serious: Yes (Other)
  Sender: FDA-Public Use
  Company Number: PHHY2016BR148089

PATIENT
  Sex: Male
  Weight: 54 kg

DRUGS (1)
  1. EXJADE [Suspect]
     Active Substance: DEFERASIROX
     Indication: SICKLE CELL ANAEMIA
     Dosage: 1000 MG, QD (2 TABLETS)
     Route: 048

REACTIONS (3)
  - Splenomegaly [Unknown]
  - Blood iron increased [Unknown]
  - Serum ferritin increased [Recovering/Resolving]
